FAERS Safety Report 8954321 (Version 1)
Quarter: 2012Q4

REPORT INFORMATION
  Report Type: 
  Country: SE (occurrence: SE)
  Receive Date: 20121210
  Receipt Date: 20121210
  Transmission Date: 20130627
  Serious: Yes (Other)
  Sender: FDA-Public Use
  Company Number: SE-AMGEN-SWESP2012069112

PATIENT
  Age: 68 Year
  Sex: Female

DRUGS (6)
  1. ENBREL [Suspect]
     Indication: PSORIATIC ARTHROPATHY
     Dosage: 50 mg, UNK
     Dates: start: 20120502, end: 20120905
  2. ENBREL [Suspect]
     Dosage: UNK
     Dates: start: 20121108
  3. TIBINIDE [Suspect]
     Dosage: UNK
  4. FOLACIN                            /00198401/ [Concomitant]
     Dosage: UNK
  5. SALAZOPYRINE [Concomitant]
     Dosage: 2 g, 1x/day
     Dates: end: 201209
  6. METHOTREXATE [Concomitant]
     Dosage: 25 mg, weekly

REACTIONS (2)
  - Polyneuropathy [Unknown]
  - Balance disorder [Recovered/Resolved]
